FAERS Safety Report 5842186-8 (Version None)
Quarter: 2008Q3

REPORT INFORMATION
  Report Type: 
  Country: None (occurrence: None)
  Receive Date: 20080812
  Receipt Date: 20080806
  Transmission Date: 20090109
  Serious: Yes (Other)
  Sender: FDA-Public Use
  Company Number: BR-ASTRAZENECA-2008UW15661

PATIENT
  Age: 22 Year
  Sex: Female

DRUGS (1)
  1. SYMBICORT [Suspect]
     Indication: BRONCHITIS
     Dosage: 12/400MCG
     Route: 055
     Dates: start: 20080701, end: 20080701

REACTIONS (3)
  - DYSPNOEA [None]
  - HEADACHE [None]
  - VOMITING [None]
